FAERS Safety Report 5149919-7 (Version None)
Quarter: 2006Q4

REPORT INFORMATION
  Report Type: 
  Country: None (occurrence: None)
  Receive Date: 20061113
  Receipt Date: 20061107
  Transmission Date: 20070319
  Serious: Yes (Other)
  Sender: FDA-Public Use
  Company Number: FR-ROXANE LABORATORIES, INC-2006-BP-12955RO

PATIENT
  Age: 7 Year
  Sex: Male

DRUGS (10)
  1. MERCAPTOPURINE [Suspect]
     Indication: CHEMOTHERAPY
     Dosage: 75 MG/M2/DAY
     Route: 048
     Dates: start: 20041012, end: 20041115
  2. MERCAPTOPURINE [Suspect]
     Dosage: 50 MG/M2/DAY
     Route: 048
     Dates: start: 20041125, end: 20050103
  3. DEXAMETHASONE TAB [Suspect]
     Indication: CHEMOTHERAPY
     Dates: start: 20040904, end: 20040925
  4. DEXAMETHASONE TAB [Suspect]
     Dosage: 6 MG/M2/DAY
     Dates: start: 20041012
  5. METHOTREXATE [Suspect]
     Indication: CHEMOTHERAPY
     Route: 037
     Dates: start: 20040904, end: 20040925
  6. METHOTREXATE [Suspect]
     Dosage: 25 MG/M2/WEEK
     Route: 048
     Dates: start: 20061012
  7. VINCRISTINE [Suspect]
     Indication: CHEMOTHERAPY
     Dates: start: 20040904, end: 20040925
  8. VINCRISTINE [Suspect]
     Dates: start: 20041012
  9. ASPARAGINASE [Suspect]
     Indication: CHEMOTHERAPY
     Dates: start: 20040904, end: 20040925
  10. DAUNORUBICIN HCL [Suspect]
     Indication: CHEMOTHERAPY
     Dates: start: 20040904, end: 20040925

REACTIONS (5)
  - ALANINE AMINOTRANSFERASE INCREASED [None]
  - COAGULATION FACTOR V LEVEL DECREASED [None]
  - INTERNATIONAL NORMALISED RATIO INCREASED [None]
  - NEUTROPENIA [None]
  - PROTHROMBIN TIME PROLONGED [None]
